FAERS Safety Report 8489608-4 (Version None)
Quarter: 2012Q3

REPORT INFORMATION
  Report Type: 
  Country: None (occurrence: None)
  Receive Date: 20120705
  Receipt Date: 20120629
  Transmission Date: 20120928
  Serious: Yes (Hospitalization, Other)
  Sender: FDA-Public Use
  Company Number: US-PFIZER INC-2012073397

PATIENT
  Sex: Male

DRUGS (16)
  1. CELEBREX [Concomitant]
     Indication: PAIN
  2. HYDROCODONE [Concomitant]
     Indication: PAIN
     Dosage: UNK
     Dates: start: 20000101
  3. EFFEXOR XR [Concomitant]
     Indication: ANXIETY
  4. CELEBREX [Concomitant]
     Indication: SPINA BIFIDA
  5. CHANTIX [Suspect]
     Dosage: 1 MG, UNK
     Route: 048
     Dates: end: 20080901
  6. LEXAPRO [Concomitant]
     Indication: DEPRESSION
     Dosage: UNK
     Dates: start: 20020101
  7. ADVAIR DISKUS 100/50 [Concomitant]
     Indication: CHRONIC OBSTRUCTIVE PULMONARY DISEASE
     Dosage: UNK
     Dates: start: 20020101
  8. VALIUM [Concomitant]
     Indication: PAIN
  9. CHANTIX [Suspect]
     Indication: SMOKING CESSATION THERAPY
     Dosage: 0.5 MG, UNK
     Route: 048
     Dates: start: 20080822
  10. ADVAIR DISKUS 100/50 [Concomitant]
     Indication: ASTHMA
  11. CIALIS [Concomitant]
     Indication: ERECTILE DYSFUNCTION
     Dosage: UNK
     Dates: start: 20040101
  12. EFFEXOR XR [Concomitant]
     Indication: DEPRESSION
     Dosage: UNK
     Dates: start: 20070101
  13. ALBUTEROL [Concomitant]
     Indication: CHRONIC OBSTRUCTIVE PULMONARY DISEASE
     Dosage: UNK
     Dates: start: 20020101
  14. CELEBREX [Concomitant]
     Indication: BACK PAIN
     Dosage: UNK
     Dates: start: 20000101
  15. VALIUM [Concomitant]
     Indication: BACK PAIN
     Dosage: UNK
     Dates: start: 20070101
  16. ALBUTEROL [Concomitant]
     Indication: ASTHMA

REACTIONS (3)
  - DEPRESSION [None]
  - SUICIDE ATTEMPT [None]
  - PARANOIA [None]
